FAERS Safety Report 8235363 (Version 2)
Quarter: 2013Q4

REPORT INFORMATION
  Report Type: Spontaneous
  Country: US (occurrence: US)
  Receive Date: 20111108
  Receipt Date: 20131220
  Transmission Date: 20140711
  Serious: Yes (Other)
  Sender: FDA-Public Use
  Company Number: US-BAYER-2011-105751

PATIENT
  Age: 29 Year
  Sex: Female

DRUGS (3)
  1. YASMIN [Suspect]
     Indication: CONTRACEPTION
     Dosage: UNK
     Dates: start: 200702
  2. ALBUTEROL [Concomitant]
  3. TRIAMCINOLONE [Concomitant]
     Dosage: 0.1 %, UNK

REACTIONS (2)
  - Gallbladder injury [None]
  - Cholecystitis chronic [None]
